FAERS Safety Report 6415413-6 (Version None)
Quarter: 2009Q4

REPORT INFORMATION
  Report Type: 
  Country: None (occurrence: None)
  Receive Date: 20091022
  Receipt Date: 20091007
  Transmission Date: 20100525
  Serious: Yes (Death, Hospitalization)
  Sender: FDA-Public Use
  Company Number: 2009002431

PATIENT
  Age: 78 Year
  Sex: Male
  Weight: 62 kg

DRUGS (12)
  1. ERLOTINIB HYDROCHLORIDE [Suspect]
     Indication: NON-SMALL CELL LUNG CANCER
     Dosage: (150 MG,QD), ORAL
     Route: 048
     Dates: start: 20090720, end: 20090728
  2. CP-751, 871 [Suspect]
     Indication: NON-SMALL CELL LUNG CANCER
     Dosage: (1240 MG,DAYS 1 AND 2 EVERY 3 WEEKS), INTRAVENOUS'
     Route: 042
     Dates: start: 20090720, end: 20090721
  3. DUPHALAC [Concomitant]
  4. IMOVANE (ZOPICLONE) [Concomitant]
  5. MICARDIS [Concomitant]
  6. PRAXILENE (NAFTIDROFURYL OXALATE) [Concomitant]
  7. FLECAINIDE ACETATE [Concomitant]
  8. PRAVASTATIN SODIUM [Concomitant]
  9. ASPIRIN [Concomitant]
  10. OMEPRAZOLE [Concomitant]
  11. OXYCONTIN [Concomitant]
  12. OXYCODONE HCL [Concomitant]

REACTIONS (1)
  - SYNCOPE [None]
